FAERS Safety Report 19363263 (Version 1)
Quarter: 2021Q2

REPORT INFORMATION
  Report Type: Spontaneous
  Country: IT (occurrence: IT)
  Receive Date: 20210602
  Receipt Date: 20210602
  Transmission Date: 20210717
  Serious: Yes (Other)
  Sender: FDA-Public Use
  Company Number: IT-ROCHE-2839723

PATIENT

DRUGS (5)
  1. REMERON [Concomitant]
     Active Substance: MIRTAZAPINE
  2. ANAFRANIL [Concomitant]
     Active Substance: CLOMIPRAMINE HYDROCHLORIDE
  3. RIVOTRIL [Suspect]
     Active Substance: CLONAZEPAM
     Route: 065
  4. ANAFRANIL [Concomitant]
     Active Substance: CLOMIPRAMINE HYDROCHLORIDE
  5. RIVOTRIL [Suspect]
     Active Substance: CLONAZEPAM
     Indication: INSOMNIA
     Route: 065

REACTIONS (6)
  - Off label use [Unknown]
  - Obsessive thoughts [Unknown]
  - Gamma-glutamyltransferase abnormal [Unknown]
  - Transaminases increased [Unknown]
  - Depression [Unknown]
  - Drug abuse [Unknown]
